FAERS Safety Report 9333017 (Version 1)
Quarter: 2013Q2

REPORT INFORMATION
  Report Type: Spontaneous
  Country: US (occurrence: US)
  Receive Date: 20130606
  Receipt Date: 20130606
  Transmission Date: 20140414
  Serious: No
  Sender: FDA-Public Use
  Company Number: US-PFIZER INC-2013168161

PATIENT
  Sex: Female

DRUGS (3)
  1. DIFLUCAN [Suspect]
     Dosage: 100 MG, UNK
  2. AMPICILLIN [Suspect]
     Dosage: 1 G, UNK
  3. POVIDONE-IODINE [Suspect]
     Dosage: 10 %, UNK

REACTIONS (1)
  - Drug hypersensitivity [Unknown]
